FAERS Safety Report 11119489 (Version 1)
Quarter: 2015Q2

REPORT INFORMATION
  Report Type: Spontaneous
  Country: US (occurrence: US)
  Receive Date: 20150518
  Receipt Date: 20150518
  Transmission Date: 20150821
  Serious: Yes (Death)
  Sender: FDA-Public Use
  Company Number: US-ASTELLAS-2015US016616

PATIENT
  Age: 99 Year
  Sex: Male

DRUGS (1)
  1. XTANDI [Suspect]
     Active Substance: ENZALUTAMIDE
     Indication: PRODUCT USED FOR UNKNOWN INDICATION
     Dosage: 120 MG, DAILY
     Route: 048
     Dates: start: 20141222, end: 20150126

REACTIONS (2)
  - Underdose [Unknown]
  - Death [Fatal]

NARRATIVE: CASE EVENT DATE: 20150126
